FAERS Safety Report 7149275 (Version 2)
Quarter: 2014Q2

REPORT INFORMATION
  Report Type: Spontaneous
  Country: None (occurrence: None)
  Receive Date: 20090929
  Receipt Date: 20140416
  Transmission Date: 20141212
  Serious: Yes (Life-Threatening, Hospitalization, Other)
  Sender: FDA-Public Use
  Company Number: 08-AUR-06527

PATIENT
  Age: 23 Year
  Sex: Female

DRUGS (3)
  1. LAMOTRIGINE [Suspect]
     Indication: INTENTIONAL OVERDOSE
     Dosage: 9.2G - X1 - ORAL
     Route: 048
  2. CITALOPRAM HYDROBROMIDE [Suspect]
     Indication: PRODUCT USED FOR UNKNOWN INDICATION
     Dosage: 220MG - X1
  3. CHLORPHENIRAMINE [Suspect]
     Indication: INTENTIONAL OVERDOSE
     Dosage: 56MG - X1 - ORAL
     Route: 048

REACTIONS (14)
  - Intentional overdose [None]
  - Agitation [None]
  - Heart rate decreased [None]
  - Blood pressure decreased [None]
  - Respiratory rate decreased [None]
  - Depressed level of consciousness [None]
  - Tremor [None]
  - Nystagmus [None]
  - Pupillary reflex impaired [None]
  - Metabolic acidosis [None]
  - Sinus tachycardia [None]
  - Electrocardiogram QRS complex prolonged [None]
  - Electrocardiogram QT prolonged [None]
  - Alcohol poisoning [None]
